FAERS Safety Report 16042224 (Version 1)
Quarter: 2019Q2

REPORT INFORMATION
  Report Type: Spontaneous
  Country: US (occurrence: US)
  Receive Date: 20190306
  Receipt Date: 20190306
  Transmission Date: 20190711
  Serious: Yes (Hospitalization)
  Sender: FDA-Public Use
  Company Number: None

PATIENT
  Sex: Male

DRUGS (8)
  1. PULMOZYME [Suspect]
     Active Substance: DORNASE ALFA
     Indication: HYPERCAPNIA
     Dosage: ?          OTHER FREQUENCY:1 VIAL QD;OTHER ROUTE:INHALE VIA NEBULIZER?
     Dates: start: 20160322
  2. MUPIROCIN OIN [Concomitant]
  3. BUDESONIDE. [Concomitant]
     Active Substance: BUDESONIDE
  4. XOFLUZA [Concomitant]
     Active Substance: BALOXAVIR MARBOXIL
  5. ALBUTEROL. [Concomitant]
     Active Substance: ALBUTEROL
  6. PULMOZYME [Suspect]
     Active Substance: DORNASE ALFA
     Indication: CHRONIC RESPIRATORY FAILURE
     Dosage: ?          OTHER FREQUENCY:1 VIAL QD;OTHER ROUTE:INHALE VIA NEBULIZER?
     Dates: start: 20160322
  7. VITAMIN D NOS [Concomitant]
     Active Substance: VITAMIN D NOS
  8. NATURAL BAL SOL TEARS [Concomitant]

REACTIONS (1)
  - Influenza [None]
